FAERS Safety Report 4488735-6 (Version None)
Quarter: 2004Q4

REPORT INFORMATION
  Report Type: 
  Country: None (occurrence: None)
  Receive Date: 20041025
  Receipt Date: 20041011
  Transmission Date: 20050328
  Serious: Yes (Other)
  Sender: FDA-Public Use
  Company Number: GBR-2004-0001302

PATIENT
  Age: 48 Year
  Sex: Male
  Weight: 100 kg

DRUGS (7)
  1. MORPHINE SULFATE [Suspect]
     Indication: PAIN
     Dosage: 50 MG, BID, ORAL
     Route: 048
  2. VORICONAZOLE (VORICONAZOLE) [Suspect]
     Indication: NEUTROPENIC SEPSIS
     Dosage: SEE IMAGE
     Route: 048
     Dates: start: 20040729
  3. CIPROFLOXACIN [Concomitant]
  4. VANCOMYCIN [Concomitant]
  5. MEROPENEM (MEROPENEM) [Concomitant]
  6. ACYCLOVIR [Concomitant]
  7. CLONAZEPAM [Concomitant]

REACTIONS (4)
  - DRUG INTERACTION [None]
  - MUSCLE TWITCHING [None]
  - SOMNOLENCE [None]
  - THERAPEUTIC AGENT TOXICITY [None]
